FAERS Safety Report 6722141-6 (Version None)
Quarter: 2010Q2

REPORT INFORMATION
  Report Type: 
  Country: None (occurrence: None)
  Receive Date: 20100510
  Receipt Date: 20100429
  Transmission Date: 20101027
  Serious: Yes (Hospitalization)
  Sender: FDA-Public Use
  Company Number: 1000010625

PATIENT
  Age: 60 Year
  Sex: Male
  Weight: 76 kg

DRUGS (8)
  1. ESCITALOPRAM [Suspect]
     Indication: DEPRESSION
     Dosage: 10 MG (10 MG, 1 IN 1 D), ORAL
     Route: 048
     Dates: start: 20090909, end: 20091026
  2. ESCITALOPRAM [Suspect]
     Indication: INSOMNIA
     Dosage: 10 MG (10 MG, 1 IN 1 D), ORAL
     Route: 048
     Dates: start: 20090909, end: 20091026
  3. VENLAFAXINE [Suspect]
  4. CLONAZEPAM [Suspect]
  5. ZOLPIDEM [Concomitant]
  6. STRESAM [Concomitant]
  7. TAREG [Concomitant]
  8. LIPANTHYL [Concomitant]

REACTIONS (5)
  - AMNESIA [None]
  - EXTRAPYRAMIDAL DISORDER [None]
  - FALL [None]
  - OFF LABEL USE [None]
  - VARIANT CREUTZFELDT-JAKOB DISEASE [None]
